FAERS Safety Report 6147131-6 (Version None)
Quarter: 2009Q2

REPORT INFORMATION
  Report Type: 
  Country: None (occurrence: None)
  Receive Date: 20090403
  Receipt Date: 20090324
  Transmission Date: 20091009
  Serious: Yes (Death)
  Sender: FDA-Public Use
  Company Number: 1000005307

PATIENT
  Age: 32 Year
  Sex: Male

DRUGS (6)
  1. LEXAPRO [Suspect]
  2. ZYPREXA [Suspect]
     Dosage: 10 MG (10 MG, 1 IN 1 D)
  3. SEROQUEL [Suspect]
  4. TRAZODONE [Suspect]
  5. BENADRYL [Suspect]
  6. DILANTIN [Suspect]

REACTIONS (3)
  - COMPLETED SUICIDE [None]
  - DILATATION VENTRICULAR [None]
  - DRUG TOXICITY [None]
